FAERS Safety Report 7334650-X (Version None)
Quarter: 2011Q1

REPORT INFORMATION
  Report Type: 
  Country: None (occurrence: None)
  Receive Date: 20110222
  Receipt Date: 20110215
  Transmission Date: 20110831
  Serious: Yes (Death)
  Sender: FDA-Public Use
  Company Number: 2008SP008991

PATIENT

DRUGS (1)
  1. TEMOZOLOMIDE [Suspect]
     Indication: BRAIN NEOPLASM

REACTIONS (2)
  - CARDIAC FAILURE [None]
  - GENERAL PHYSICAL HEALTH DETERIORATION [None]
